FAERS Safety Report 21760514 (Version 1)
Quarter: 2022Q4

REPORT INFORMATION
  Report Type: Report from Study
  Country: US (occurrence: US)
  Receive Date: 20221221
  Receipt Date: 20221221
  Transmission Date: 20230113
  Serious: No
  Sender: FDA-Public Use
  Company Number: US-ABBVIE-4204179

PATIENT
  Sex: Female

DRUGS (2)
  1. HUMIRA [Suspect]
     Active Substance: ADALIMUMAB
     Indication: Crohn^s disease
     Dosage: CITRATE FREE; CONSTIPATION/NO BOWEL MOVEMENT STARTED ON AN UNKNOWN DATE IN NOV 2022 AFTER DRUG ST...
     Route: 058
     Dates: start: 20221114
  2. PREDNISONE [Concomitant]
     Active Substance: PREDNISONE
     Indication: Product used for unknown indication
     Dates: start: 20221114

REACTIONS (1)
  - Constipation [Not Recovered/Not Resolved]
